FAERS Safety Report 7016553-3 (Version None)
Quarter: 2010Q3

REPORT INFORMATION
  Report Type: 
  Country: None (occurrence: None)
  Receive Date: 20100927
  Receipt Date: 20100920
  Transmission Date: 20110219
  Serious: Yes (Hospitalization)
  Sender: FDA-Public Use
  Company Number: A0881105A

PATIENT
  Age: 16 Year
  Sex: Female

DRUGS (4)
  1. LAMICTAL [Suspect]
     Indication: BIPOLAR DISORDER
     Dosage: 400MG PER DAY
     Route: 048
     Dates: start: 20080101
  2. ABILIFY [Concomitant]
  3. VYVANSE [Concomitant]
  4. ADDERALL 10 [Concomitant]

REACTIONS (17)
  - ABDOMINAL PAIN UPPER [None]
  - ASTHENIA [None]
  - CYST REMOVAL [None]
  - DYSPEPSIA [None]
  - ERYTHEMA [None]
  - FACIAL PAIN [None]
  - FATIGUE [None]
  - INFECTION [None]
  - LYMPHADENOPATHY [None]
  - MUSCLE DISORDER [None]
  - OROPHARYNGEAL PAIN [None]
  - OVARIAN CYST [None]
  - PALLOR [None]
  - PYREXIA [None]
  - SWELLING FACE [None]
  - VIITH NERVE PARALYSIS [None]
  - WHITE BLOOD CELL COUNT INCREASED [None]
